FAERS Safety Report 6535197-0 (Version None)
Quarter: 2010Q1

REPORT INFORMATION
  Report Type: 
  Country: None (occurrence: None)
  Receive Date: 20100111
  Receipt Date: 20100111
  Transmission Date: 20100710
  Serious: No
  Sender: FDA-Public Use
  Company Number: None

PATIENT
  Age: 71 Year
  Sex: Female

DRUGS (6)
  1. PLAVIX [Suspect]
     Indication: CORONARY ARTERY OCCLUSION
     Dosage: 75 1X A DAY
     Dates: start: 20091224
  2. PLAVIX [Suspect]
     Indication: CORONARY ARTERY OCCLUSION
     Dosage: 75 1X A DAY
     Dates: start: 20091225
  3. PLAVIX [Suspect]
     Indication: CORONARY ARTERY OCCLUSION
     Dosage: 75 1X A DAY
     Dates: start: 20091226
  4. PLAVIX [Suspect]
     Indication: CORONARY ARTERY OCCLUSION
     Dosage: 75 1X A DAY
     Dates: start: 20091227
  5. PLAVIX [Suspect]
     Indication: CORONARY ARTERY OCCLUSION
     Dosage: 75 1X A DAY
     Dates: start: 20091228
  6. PLAVIX [Suspect]
     Indication: CORONARY ARTERY OCCLUSION
     Dosage: 75 1X A DAY
     Dates: start: 20091229

REACTIONS (2)
  - MUSCLE SPASMS [None]
  - PAIN IN EXTREMITY [None]
